FAERS Safety Report 8603351-X (Version None)
Quarter: 2012Q3

REPORT INFORMATION
  Report Type: 
  Country: None (occurrence: None)
  Receive Date: 20120817
  Receipt Date: 20120813
  Transmission Date: 20120928
  Serious: Yes (Other)
  Sender: FDA-Public Use
  Company Number: US-UCBSA-063549

PATIENT
  Age: 47 Year
  Sex: Female
  Weight: 68 kg

DRUGS (5)
  1. VIMPAT [Suspect]
     Indication: CONVULSION
     Dosage: 200 MG BID, PATIENT TAKING EVERY OTHER DAY
     Dates: end: 20120809
  2. LAMOTRIGINE [Concomitant]
  3. EPIPEN [Concomitant]
     Dosage: AS NEEDED
  4. LEXAPRO [Concomitant]
  5. FOSAMAX [Concomitant]

REACTIONS (2)
  - GRAND MAL CONVULSION [None]
  - DEHYDRATION [None]
